FAERS Safety Report 14172620 (Version 1)
Quarter: 2017Q4

REPORT INFORMATION
  Report Type: Spontaneous
  Country: US (occurrence: US)
  Receive Date: 20171109
  Receipt Date: 20171109
  Transmission Date: 20180321
  Serious: Yes (Life-Threatening, Hospitalization, Other)
  Sender: FDA-Public Use
  Company Number: US-BRISTOL-MYERS SQUIBB COMPANY-BMS-2017-101496

PATIENT
  Age: 83 Year
  Sex: Male

DRUGS (1)
  1. COUMADIN [Suspect]
     Active Substance: WARFARIN SODIUM
     Indication: PRODUCT USED FOR UNKNOWN INDICATION
     Route: 065

REACTIONS (6)
  - Gallbladder disorder [Unknown]
  - Heart rate irregular [Unknown]
  - Blindness [Unknown]
  - Pancreas infection [Unknown]
  - Haematochezia [Unknown]
  - Haemorrhage [Unknown]

NARRATIVE: CASE EVENT DATE: 20171102
